FAERS Safety Report 9316143 (Version 2)
Quarter: 2013Q2

REPORT INFORMATION
  Report Type: Report from Study
  Country: AR (occurrence: AR)
  Receive Date: 20130530
  Receipt Date: 20130612
  Transmission Date: 20140414
  Serious: Yes (Other)
  Sender: FDA-Public Use
  Company Number: AR-ROCHE-GNE321535

PATIENT
  Age: 66 Year
  Sex: Female

DRUGS (5)
  1. RANIBIZUMAB [Suspect]
     Indication: MACULAR DEGENERATION
     Dosage: 1 DF, Q3M
     Route: 050
     Dates: start: 20100503
  2. RANIBIZUMAB [Suspect]
     Dosage: 1 DF, Q3M
     Route: 050
  3. RANIBIZUMAB [Suspect]
     Dosage: 1 DF, Q3M
     Route: 050
  4. RANIBIZUMAB [Suspect]
     Dosage: 1 DF, Q3M
     Route: 050
     Dates: start: 20110531
  5. RANIBIZUMAB [Suspect]
     Dosage: 0.5 DF, UNK
     Route: 050
     Dates: start: 20110707

REACTIONS (3)
  - Macular degeneration [Not Recovered/Not Resolved]
  - Retinal haemorrhage [Not Recovered/Not Resolved]
  - Inappropriate schedule of drug administration [Unknown]
